FAERS Safety Report 17325163 (Version 1)
Quarter: 2020Q1

REPORT INFORMATION
  Report Type: Spontaneous
  Country: US (occurrence: US)
  Receive Date: 20200126
  Receipt Date: 20200126
  Transmission Date: 20200409
  Serious: Yes (Disabling)
  Sender: FDA-Public Use
  Company Number: None

PATIENT
  Age: 48 Year
  Sex: Female
  Weight: 60.75 kg

DRUGS (7)
  1. LIVER DTX [Concomitant]
  2. VITA-D [Concomitant]
     Active Substance: CHOLECALCIFEROL
  3. VITAMIN B COMPLEX [Concomitant]
     Active Substance: CYANOCOBALAMIN\DEXPANTHENOL\NIACINAMIDE\PYRIDOXINE HYDROCHLORIDE\RIBOFLAVIN 5^-PHOSPHATE SODIUM\THIAMINE HYDROCHLORIDE\VITAMIN B COMPLEX
  4. ENERGIZING SOY PROTEIN [Concomitant]
     Active Substance: SOY PROTEIN
  5. LEVAQUIN [Suspect]
     Active Substance: LEVOFLOXACIN
     Indication: KIDNEY INFECTION
     Route: 048
     Dates: start: 20190324, end: 20190329
  6. MAGNESIUM [Concomitant]
     Active Substance: MAGNESIUM
  7. VITA-C [Concomitant]

REACTIONS (1)
  - Tendon pain [None]

NARRATIVE: CASE EVENT DATE: 20190401
